FAERS Safety Report 5415360-2 (Version None)
Quarter: 2007Q3

REPORT INFORMATION
  Report Type: 
  Country: None (occurrence: None)
  Receive Date: 20070813
  Receipt Date: 20070727
  Transmission Date: 20080115
  Serious: Yes (Hospitalization)
  Sender: FDA-Public Use
  Company Number: DSA_28239_2006

PATIENT
  Sex: Male

DRUGS (12)
  1. TEMESTA (TEMESTA) (NOT SPECIFIED) [Suspect]
     Indication: BIPOLAR I DISORDER
     Dates: start: 20060212, end: 20060322
  2. LAMICTAL (LAMICTAL) (NOT SPECIFIED) [Suspect]
     Dates: start: 20060221, end: 20060302
  3. LAMICTAL (LAMICTAL) (NOT SPECIFIED) [Suspect]
     Dates: start: 20060303, end: 20060307
  4. LEPONEX (LEPONEX (NOT SPECIFIED) [Suspect]
     Dates: start: 20060212, end: 20060217
  5. LEPONEX (LEPONEX) (NOT SPECIFIED) [Suspect]
     Dates: start: 20060218, end: 20060225
  6. LEPONEX (LEPONEX) (NOT SPECIFIED) [Suspect]
     Dates: start: 20060226, end: 20060307
  7. LEPONEX (LEPONEX) (NOT SPECIFIED) [Suspect]
     Dates: start: 20060308, end: 20060309
  8. LEPONEX (LEPONEX (NOT SPECIFIED) [Suspect]
     Dates: start: 20060314, end: 20060407
  9. ALNA [Concomitant]
  10. DEPAKENE [Concomitant]
  11. RISPERDAL [Concomitant]
  12. PSYCHOPAX [Concomitant]

REACTIONS (6)
  - ANTIPSYCHOTIC DRUG LEVEL INCREASED [None]
  - DELIRIUM [None]
  - DRUG INTERACTION [None]
  - DRUG INTERACTION POTENTIATION [None]
  - DRUG LEVEL INCREASED [None]
  - RASH [None]
